FAERS Safety Report 12166535 (Version 1)
Quarter: 2016Q1

REPORT INFORMATION
  Report Type: Spontaneous
  Country: KR (occurrence: KR)
  Receive Date: 20160309
  Receipt Date: 20160309
  Transmission Date: 20160526
  Serious: Yes (Death, Hospitalization)
  Sender: FDA-Public Use
  Company Number: KR-STRIDES ARCOLAB LIMITED-2016SP001526

PATIENT

DRUGS (9)
  1. RITUXIMAB [Suspect]
     Active Substance: RITUXIMAB
     Indication: TRANSPLANT REJECTION
     Dosage: UNK
  2. MYCOPHENOLATE MOFETIL. [Suspect]
     Active Substance: MYCOPHENOLATE MOFETIL
     Indication: IMMUNOSUPPRESSION
     Dosage: UNK
  3. METHYLPREDNISOLONE. [Suspect]
     Active Substance: METHYLPREDNISOLONE
     Indication: BLOOD CREATININE INCREASED
  4. RITUXIMAB [Suspect]
     Active Substance: RITUXIMAB
     Indication: BLOOD CREATININE INCREASED
  5. IMMUNOGLOBULIN                     /00025201/ [Suspect]
     Active Substance: HUMAN IMMUNOGLOBULIN G
     Indication: TRANSPLANT REJECTION
     Dosage: UNK
  6. IMMUNOGLOBULIN                     /00025201/ [Suspect]
     Active Substance: HUMAN IMMUNOGLOBULIN G
     Indication: BLOOD CREATININE INCREASED
  7. TACROLIMUS. [Suspect]
     Active Substance: TACROLIMUS
     Indication: IMMUNOSUPPRESSION
     Dosage: UNK
  8. PREDNISOLONE. [Suspect]
     Active Substance: PREDNISOLONE
     Indication: IMMUNOSUPPRESSION
     Dosage: UNK
  9. METHYLPREDNISOLONE. [Suspect]
     Active Substance: METHYLPREDNISOLONE
     Indication: TRANSPLANT REJECTION
     Dosage: UNK

REACTIONS (15)
  - Abscess [Unknown]
  - Cardiac arrest [Fatal]
  - Pulmonary cavitation [Unknown]
  - Pyrexia [Unknown]
  - Ileus paralytic [Unknown]
  - Myocardiac abscess [Unknown]
  - Splenic abscess [Unknown]
  - Cytomegalovirus viraemia [Recovered/Resolved]
  - Pleuritic pain [Unknown]
  - Cytomegalovirus colitis [Unknown]
  - Splenic infarction [Unknown]
  - Mucormycosis [Unknown]
  - Haematoma [Unknown]
  - Blood creatinine increased [Unknown]
  - Pleural effusion [Recovered/Resolved]
